FAERS Safety Report 9227449 (Version 1)
Quarter: 2013Q1

REPORT INFORMATION
  Report Type: Spontaneous
  Country: US (occurrence: None)
  Receive Date: 20121004
  Receipt Date: 20121004
  Transmission Date: 20140127
  Serious: Yes (Other)
  Sender: FDA-Public Use
  Company Number: PHEH2011US02520

PATIENT
  Age: 58 Year
  Sex: Female

DRUGS (5)
  1. ESTALIS [Suspect]
     Route: 062
     Dates: start: 201009
  2. CLIMARA (ESTRADIOL) [Suspect]
  3. LEXAPRO (ESCITALOPRAM OXALATE) [Suspect]
  4. DIAZEPINE ( NO INGREDIENTS/SUBSTANCES) [Concomitant]
  5. AMLODIPINE ( AMLODIPINE) [Concomitant]

REACTIONS (7)
  - Depression [None]
  - Hormone level abnormal [None]
  - Vaginal haemorrhage [None]
  - Pain in extremity [None]
  - Application site irritation [None]
  - Application site burn [None]
  - Drug ineffective [None]
